FAERS Safety Report 21456865 (Version 1)
Quarter: 2022Q4

REPORT INFORMATION
  Report Type: Spontaneous
  Country: ES (occurrence: ES)
  Receive Date: 20221014
  Receipt Date: 20221014
  Transmission Date: 20230112
  Serious: Yes (Disabling, Other)
  Sender: FDA-Public Use
  Company Number: ES-TAKEDA-2022TUS073631

PATIENT
  Age: 80 Year
  Sex: Male

DRUGS (2)
  1. FEBUXOSTAT [Suspect]
     Active Substance: FEBUXOSTAT
     Indication: Hyperuricaemia
     Dosage: 80 MILLIGRAM, QD
     Route: 048
     Dates: start: 20220929, end: 20221004
  2. FEBUXOSTAT [Suspect]
     Active Substance: FEBUXOSTAT
     Indication: Gout

REACTIONS (4)
  - Gait inability [Recovering/Resolving]
  - Pain in extremity [Recovering/Resolving]
  - Condition aggravated [Recovering/Resolving]
  - Gout [Recovering/Resolving]

NARRATIVE: CASE EVENT DATE: 20220929
